FAERS Safety Report 22301678 (Version 1)
Quarter: 2023Q2

REPORT INFORMATION
  Report Type: Other
  Country: US (occurrence: None)
  Receive Date: 20230510
  Receipt Date: 20230510
  Transmission Date: 20230722
  Serious: No
  Sender: FDA-Public Use
  Company Number: US-ROCHE-3343735

PATIENT
  Age: 51 Year
  Sex: Male
  Weight: 62.198 kg

DRUGS (6)
  1. OCREVUS [Suspect]
     Active Substance: OCRELIZUMAB
     Indication: Primary progressive multiple sclerosis
     Dosage: ONGOING: YES
     Route: 042
     Dates: start: 20220930
  2. ALBUTEROL [Concomitant]
     Active Substance: ALBUTEROL
  3. AMITRIPTYLINE [Concomitant]
     Active Substance: AMITRIPTYLINE
  4. BACLOFEN [Concomitant]
     Active Substance: BACLOFEN
  5. DIAZEPAM [Concomitant]
     Active Substance: DIAZEPAM
  6. LYRICA [Concomitant]
     Active Substance: PREGABALIN

REACTIONS (1)
  - Tuberculosis [Unknown]

NARRATIVE: CASE EVENT DATE: 20230502
